FAERS Safety Report 10754092 (Version 1)
Quarter: 2015Q1

REPORT INFORMATION
  Report Type: Spontaneous
  Country: US (occurrence: None)
  Receive Date: 20150130
  Receipt Date: 20150130
  Transmission Date: 20150721
  Serious: Yes (Hospitalization)
  Sender: FDA-Public Use
  Company Number: None

PATIENT
  Age: 27 Year
  Sex: Male
  Weight: 84.1 kg

DRUGS (2)
  1. TRAZODONE [Suspect]
     Active Substance: TRAZODONE HYDROCHLORIDE
     Indication: INSOMNIA
     Dosage: MG PO
     Route: 048
     Dates: start: 20140108
  2. QUETIAPINE [Suspect]
     Active Substance: QUETIAPINE
     Indication: DEPRESSION
     Dosage: MG PO
     Route: 048
     Dates: start: 20140108

REACTIONS (4)
  - Somnolence [None]
  - Accidental overdose [None]
  - Toxicologic test abnormal [None]
  - Mental status changes [None]

NARRATIVE: CASE EVENT DATE: 20141026
